FAERS Safety Report 9170612 (Version 1)
Quarter: 2013Q1

REPORT INFORMATION
  Report Type: Spontaneous
  Country: US (occurrence: None)
  Receive Date: 20130315
  Receipt Date: 20130315
  Transmission Date: 20140127
  Serious: Yes (Death)
  Sender: FDA-Public Use
  Company Number: None

PATIENT
  Age: 86 Year
  Sex: Female

DRUGS (1)
  1. CLOPIDROGEL MYLAN [Suspect]

REACTIONS (4)
  - Fall [None]
  - Subdural haematoma [None]
  - Loss of consciousness [None]
  - Respiratory arrest [None]
